FAERS Safety Report 6269218-X (Version None)
Quarter: 2009Q3

REPORT INFORMATION
  Report Type: 
  Country: None (occurrence: None)
  Receive Date: 20090715
  Receipt Date: 20090702
  Transmission Date: 20100115
  Serious: Yes (Life-Threatening, Hospitalization)
  Sender: FDA-Public Use
  Company Number: BE-ROCHE-641787

PATIENT
  Sex: Male
  Weight: 100 kg

DRUGS (5)
  1. PEG-INTERFERON ALFA 2A (RO 25-8310) [Suspect]
     Route: 058
     Dates: start: 20080620, end: 20090514
  2. RIBAVIRIN [Suspect]
     Route: 048
     Dates: start: 20080620, end: 20090514
  3. REMERGON [Concomitant]
     Indication: DEPRESSION
     Dosage: FREQUENCY REPORTED AS 1/G.
     Route: 048
  4. VENTOLIN [Concomitant]
     Indication: ASTHMA
     Dosage: ROUTE REPORTED AS PUFF.
  5. EPSIPAM [Concomitant]
     Indication: DEPRESSION
     Dosage: DOSE REPORTED AS 2, FREQUENCY REPORTED AS 1/1.
     Route: 048

REACTIONS (2)
  - ENTEROCOLITIS INFECTIOUS [None]
  - SEPTIC SHOCK [None]
